FAERS Safety Report 9495759 (Version 1)
Quarter: 2013Q3

REPORT INFORMATION
  Report Type: Spontaneous
  Country: NL (occurrence: NL)
  Receive Date: 20130903
  Receipt Date: 20130903
  Transmission Date: 20140515
  Serious: Yes (Other)
  Sender: FDA-Public Use
  Company Number: ALCN2013NL004419

PATIENT
  Sex: 0

DRUGS (10)
  1. POVIDONE [Suspect]
     Indication: POSTOPERATIVE CARE
     Dosage: UNK, TID
     Route: 047
  2. NEVANAC [Suspect]
     Indication: POSTOPERATIVE CARE
     Dosage: UNK, TID
     Route: 047
  3. VIGAMOX [Suspect]
     Indication: POSTOPERATIVE CARE
     Dosage: UNK, TID
     Route: 047
  4. FML [Suspect]
     Indication: POSTOPERATIVE CARE
     Dosage: UNK, BID
     Route: 047
  5. TETRACAINE [Concomitant]
     Indication: LOCAL ANAESTHESIA
     Route: 047
  6. OXYBUPROCAINE [Concomitant]
     Indication: LOCAL ANAESTHESIA
     Dosage: EVERY 3MIN FOR 30MIN.
     Route: 047
  7. RIBOFLAVIN [Concomitant]
     Dosage: EVERY 3 MIN FOR 30 MIN
     Route: 047
  8. RIBOFLAVIN [Concomitant]
     Dosage: EVERY 20 SEC FOR 5 MIN; REPEATED 2 TIMES.
     Route: 047
  9. RIBOFLAVIN [Concomitant]
     Dosage: EVERY 5 MIN
     Route: 047
  10. ANALGESICS [Concomitant]
     Dosage: UNK
     Route: 048

REACTIONS (1)
  - Corneal opacity [Not Recovered/Not Resolved]
